FAERS Safety Report 9916212 (Version 2)
Quarter: 2014Q1

REPORT INFORMATION
  Report Type: Spontaneous
  Country: CH (occurrence: CH)
  Receive Date: 20140221
  Receipt Date: 20140221
  Transmission Date: 20141002
  Serious: Yes (Other)
  Sender: FDA-Public Use
  Company Number: CH-JNJFOC-20140201735

PATIENT
  Sex: Female
  Weight: 60 kg

DRUGS (2)
  1. SIMPONI [Suspect]
     Indication: SPONDYLITIS
     Route: 058
     Dates: start: 201208, end: 201401
  2. VIMOVO [Concomitant]
     Indication: SPONDYLITIS
     Dosage: ONCE OR TWICE DAILY
     Route: 048
     Dates: start: 2011

REACTIONS (2)
  - Iritis [Recovered/Resolved]
  - Ankylosing spondylitis [Recovered/Resolved]
